FAERS Safety Report 9978745 (Version 2)
Quarter: 2014Q1

REPORT INFORMATION
  Report Type: Report from Study
  Country: US (occurrence: US)
  Receive Date: 20140306
  Receipt Date: 20140306
  Transmission Date: 20141002
  Serious: No
  Sender: FDA-Public Use
  Company Number: US-ABBVIE-13P-163-1168597-00

PATIENT
  Age: 57 Year
  Sex: Female
  Weight: 81.72 kg

DRUGS (5)
  1. HUMIRA [Suspect]
     Indication: CROHN^S DISEASE
     Route: 058
     Dates: start: 20131106, end: 20131106
  2. HUMIRA [Suspect]
     Route: 058
     Dates: start: 20131120, end: 20131120
  3. HUMIRA [Suspect]
     Route: 058
     Dates: start: 201311
  4. PRISTIQ [Concomitant]
     Indication: DEPRESSION
  5. DIVALPROEX SODIUM [Concomitant]
     Indication: DEPRESSION

REACTIONS (7)
  - Back disorder [Not Recovered/Not Resolved]
  - Muscle strain [Not Recovered/Not Resolved]
  - Back injury [Not Recovered/Not Resolved]
  - Pain [Not Recovered/Not Resolved]
  - Headache [Recovered/Resolved]
  - Alopecia [Not Recovered/Not Resolved]
  - Genital abscess [Not Recovered/Not Resolved]
